FAERS Safety Report 16106510 (Version 1)
Quarter: 2019Q1

REPORT INFORMATION
  Report Type: Report from Study
  Country: CA (occurrence: CA)
  Receive Date: 20190322
  Receipt Date: 20190322
  Transmission Date: 20190418
  Serious: Yes (Death)
  Sender: FDA-Public Use
  Company Number: CA-TAIHO ONCOLOGY  INC-EU-2019-00816

PATIENT
  Age: 71 Year
  Sex: Female
  Weight: 89.8 kg

DRUGS (8)
  1. AMLODIPINE [Concomitant]
     Active Substance: AMLODIPINE BESYLATE
  2. LANTUS [Concomitant]
     Active Substance: INSULIN GLARGINE
     Dosage: NI
  3. XARELTO [Concomitant]
     Active Substance: RIVAROXABAN
  4. ELTROXIN [Concomitant]
     Active Substance: LEVOTHYROXINE
  5. LONSURF [Suspect]
     Active Substance: TIPIRACIL HYDROCHLORIDE\TRIFLURIDINE
     Indication: COLORECTAL CANCER METASTATIC
     Dosage: CURRENT CYCLE 2 STARTED ON 28/JAN/2019.
     Route: 048
     Dates: start: 20181228, end: 20190208
  6. COVERSYL PLUS [Concomitant]
     Active Substance: INDAPAMIDE\PERINDOPRIL
     Dosage: 8/2.5MG
  7. NOVORAPID [Concomitant]
     Active Substance: INSULIN ASPART
     Dosage: NI
  8. EURO-FER [Concomitant]

REACTIONS (1)
  - Death [Fatal]

NARRATIVE: CASE EVENT DATE: 20190208
